FAERS Safety Report 17081620 (Version 1)
Quarter: 2019Q4

REPORT INFORMATION
  Report Type: Spontaneous
  Country: US (occurrence: US)
  Receive Date: 20191029
  Receipt Date: 20191029
  Transmission Date: 20200122
  Serious: Yes (Other)
  Sender: FDA-Public Use
  Company Number: None

PATIENT
  Age: 66 Year
  Sex: Female
  Weight: 90.26 kg

DRUGS (4)
  1. GARLIC. [Concomitant]
     Active Substance: GARLIC
  2. VITAMIN D [Concomitant]
     Active Substance: VITAMIN D NOS
  3. SPIRONOLACTO 24MG TAB [Suspect]
     Active Substance: SPIRONOLACTONE
     Indication: HYPERTENSION
     Dosage: ?          OTHER FREQUENCY:BID - MORN + NIGHT;?
     Route: 048
     Dates: start: 2016, end: 201909
  4. CARVEDILOL 12.5MG [Suspect]
     Active Substance: CARVEDILOL

REACTIONS (16)
  - Myalgia [None]
  - Upper-airway cough syndrome [None]
  - Chest pain [None]
  - Arthralgia [None]
  - Dysstasia [None]
  - Muscle spasms [None]
  - Hyperhidrosis [None]
  - Dyspnoea [None]
  - Blood pressure decreased [None]
  - Palpitations [None]
  - Dry mouth [None]
  - Wheezing [None]
  - Weight increased [None]
  - Dry eye [None]
  - Gait disturbance [None]
  - Cough [None]
